FAERS Safety Report 7604985-1 (Version None)
Quarter: 2011Q3

REPORT INFORMATION
  Report Type: 
  Country: None (occurrence: None)
  Receive Date: 20110713
  Receipt Date: 20110705
  Transmission Date: 20111222
  Serious: No
  Sender: FDA-Public Use
  Company Number: US-BIOGENIDEC-2011BI024934

PATIENT
  Age: 37 Year
  Sex: Female

DRUGS (3)
  1. INSULIN PUMP [Concomitant]
     Indication: DIABETES MELLITUS
  2. BLOOD PRESSURE MEDICINE (NOS) [Concomitant]
     Indication: HYPERTENSION
  3. TYSABRI [Suspect]
     Indication: MULTIPLE SCLEROSIS
     Route: 042
     Dates: start: 20110630

REACTIONS (6)
  - COORDINATION ABNORMAL [None]
  - VOMITING [None]
  - INFLUENZA LIKE ILLNESS [None]
  - BALANCE DISORDER [None]
  - DIZZINESS [None]
  - SPEECH DISORDER [None]
